FAERS Safety Report 25281014 (Version 1)
Quarter: 2025Q2

REPORT INFORMATION
  Report Type: Spontaneous
  Country: GB (occurrence: GB)
  Receive Date: 20250508
  Receipt Date: 20250508
  Transmission Date: 20250717
  Serious: Yes (Other)
  Sender: TEVA
  Company Number: GB-MHRA-TPP15097826C24430042YC1746107762943

PATIENT
  Age: 73 Year
  Sex: Female
  Weight: 66 kg

DRUGS (15)
  1. DOXAZOSIN [Suspect]
     Active Substance: DOXAZOSIN MESYLATE
     Indication: Ill-defined disorder
     Route: 048
     Dates: start: 20250501
  2. RAMIPRIL [Concomitant]
     Active Substance: RAMIPRIL
     Indication: Ill-defined disorder
     Route: 048
     Dates: start: 20250130
  3. FML [Concomitant]
     Active Substance: FLUOROMETHOLONE
     Indication: Ill-defined disorder
     Dosage: DROP
     Route: 065
     Dates: start: 20250130, end: 20250210
  4. IBUPROFEN [Concomitant]
     Active Substance: IBUPROFEN
     Indication: Ill-defined disorder
     Route: 061
     Dates: start: 20250130
  5. DOXAZOSIN [Concomitant]
     Active Substance: DOXAZOSIN MESYLATE
     Indication: Ill-defined disorder
     Route: 048
     Dates: start: 20250130, end: 20250501
  6. ZEROVEEN [Concomitant]
     Indication: Ill-defined disorder
     Route: 065
     Dates: start: 20250130
  7. SODIUM ALGINATE [Concomitant]
     Active Substance: SODIUM ALGINATE
     Indication: Ill-defined disorder
     Route: 065
     Dates: start: 20250317, end: 20250414
  8. CALCIUM CARBONATE [Concomitant]
     Active Substance: CALCIUM CARBONATE
     Indication: Ill-defined disorder
     Route: 048
     Dates: start: 20250130
  9. LANSOPRAZOLE [Concomitant]
     Active Substance: LANSOPRAZOLE
     Indication: Ill-defined disorder
     Route: 048
     Dates: start: 20250130
  10. SIMVASTATIN [Concomitant]
     Active Substance: SIMVASTATIN
     Indication: Ill-defined disorder
     Dosage: AT NIGHT
     Route: 048
     Dates: start: 20250130
  11. HYABAK [Concomitant]
     Indication: Ill-defined disorder
     Route: 065
     Dates: start: 20250130
  12. CYCLOSPORINE [Concomitant]
     Active Substance: CYCLOSPORINE
     Indication: Ill-defined disorder
     Dosage: TO BOTH EYES (AS PER SPECIA...
     Route: 065
     Dates: start: 20250410, end: 20250428
  13. DOXYCYCLINE [Concomitant]
     Active Substance: DOXYCYCLINE
     Indication: Ill-defined disorder
     Route: 048
     Dates: start: 20250329, end: 20250425
  14. ACETAMINOPHEN [Concomitant]
     Active Substance: ACETAMINOPHEN
     Indication: Ill-defined disorder
     Dosage: ONE OR TWO TO BE TAKEN FOUR TIMES A DAY IF NEEDED
     Route: 048
     Dates: start: 20250130
  15. PREDNISOLONE ACETATE [Concomitant]
     Active Substance: PREDNISOLONE ACETATE
     Indication: Ill-defined disorder
     Route: 065
     Dates: start: 20250329, end: 20250403

REACTIONS (1)
  - Swelling [Recovered/Resolved]

NARRATIVE: CASE EVENT DATE: 20250501
